FAERS Safety Report 9124598 (Version 4)
Quarter: 2013Q2

REPORT INFORMATION
  Report Type: Spontaneous
  Country: JP (occurrence: JP)
  Receive Date: 20130227
  Receipt Date: 20130606
  Transmission Date: 20140414
  Serious: Yes (Other)
  Sender: FDA-Public Use
  Company Number: JP-UCBSA-078903

PATIENT
  Age: 62 Year
  Sex: Male
  Weight: 63.5 kg

DRUGS (9)
  1. E KEPPRA [Suspect]
     Indication: EPILEPSY
     Route: 048
     Dates: start: 20121203, end: 20130212
  2. BAKTAR [Suspect]
     Indication: PROPHYLAXIS
     Dosage: DAILY DOSE: 1DF
     Route: 048
     Dates: start: 20121228, end: 20130208
  3. PREDONINE [Concomitant]
     Indication: ENCEPHALITIS
     Dosage: DAILY DOSE: 15MG
     Route: 048
     Dates: start: 20121212, end: 20130208
  4. ZYPREXA [Concomitant]
     Indication: SEDATIVE THERAPY
     Dosage: DAILY DOSE: 20MG
     Route: 048
     Dates: end: 20130208
  5. RISPERDAL [Concomitant]
     Dates: end: 20130208
  6. TAKEPRON [Concomitant]
     Dosage: DAILY DOSE: 15MG
     Route: 048
     Dates: start: 20130104, end: 20130212
  7. ROHYPNOL [Concomitant]
     Indication: SEDATIVE THERAPY
     Dosage: DAILY DOSE: 1MG
     Route: 048
  8. MAGMITT [Concomitant]
     Indication: CONSTIPATION
     Dosage: DAILY DOSE: 1980MG
     Route: 048
  9. URSO [Concomitant]
     Indication: LIVER DISORDER
     Dosage: DAILY DOSE: 300MG
     Route: 048

REACTIONS (2)
  - Neutropenia [Recovered/Resolved]
  - Pyrexia [Recovered/Resolved]
